FAERS Safety Report 4283610-4 (Version None)
Quarter: 2004Q1

REPORT INFORMATION
  Report Type: 
  Country: None (occurrence: None)
  Receive Date: 20040121
  Receipt Date: 20030910
  Transmission Date: 20041129
  Serious: Yes (Hospitalization)
  Sender: FDA-Public Use
  Company Number: A03200302078

PATIENT
  Age: 50 Year
  Sex: Female
  Weight: 80.7403 kg

DRUGS (5)
  1. PLAVIX [Suspect]
     Indication: PERIPHERAL VASCULAR DISORDER
     Dosage: 75 MG QD - ORAL
     Route: 048
     Dates: start: 20001101, end: 20010101
  2. LISINOPRIL DIHYDRATE - HYDROCHLOROTHIAZIDE [Concomitant]
  3. METOPROLOL TARTRATE [Concomitant]
  4. TRANDOLAPRIL [Concomitant]
  5. CETIRIZINE HYDROCHLORIDE [Concomitant]

REACTIONS (4)
  - DRUG INEFFECTIVE [None]
  - EPISTAXIS [None]
  - MYOCARDIAL INFARCTION [None]
  - PAIN IN EXTREMITY [None]
